FAERS Safety Report 4608601-2 (Version None)
Quarter: 2005Q1

REPORT INFORMATION
  Report Type: 
  Country: None (occurrence: None)
  Receive Date: 20050315
  Receipt Date: 20050304
  Transmission Date: 20050727
  Serious: Yes (Hospitalization)
  Sender: FDA-Public Use
  Company Number: JP-JNJFOC-20050204325

PATIENT
  Sex: Male

DRUGS (19)
  1. RISPERDAL [Suspect]
  2. RISPERDAL [Suspect]
     Indication: DRUG USE FOR UNKNOWN INDICATION
  3. TRIHEXYPHENIDYL HCL [Suspect]
     Indication: SCHIZOPHRENIA
     Route: 049
  4. FLUNITRAZEPAM [Suspect]
     Route: 049
  5. FLUNITRAZEPAM [Suspect]
     Indication: SCHIZOPHRENIA
     Route: 049
  6. CHLORPROMAZINE/PROMETHAZINE [Suspect]
     Route: 049
  7. CHLORPROMAZINE/PROMETHAZINE [Suspect]
     Route: 049
  8. CHLORPROMAZINE/PROMETHAZINE [Suspect]
     Indication: SCHIZOPHRENIA
     Route: 049
  9. ASPIRIN/DIALUMINATE [Suspect]
     Route: 049
  10. ASPIRIN/DIALUMINATE [Suspect]
     Route: 049
  11. ASPIRIN/DIALUMINATE [Suspect]
     Route: 049
  12. PABRON [Suspect]
     Route: 049
  13. PABRON [Suspect]
     Route: 049
  14. PABRON [Suspect]
     Route: 049
  15. PABRON [Suspect]
     Route: 049
  16. PABRON [Suspect]
     Route: 049
  17. PABRON [Suspect]
     Route: 049
  18. PABRON [Suspect]
     Route: 049
  19. PABRON [Suspect]
     Route: 049

REACTIONS (2)
  - DEPRESSED LEVEL OF CONSCIOUSNESS [None]
  - RHABDOMYOLYSIS [None]
